FAERS Safety Report 6693980-5 (Version None)
Quarter: 2010Q2

REPORT INFORMATION
  Report Type: 
  Country: None (occurrence: None)
  Receive Date: 20100423
  Receipt Date: 20100413
  Transmission Date: 20101027
  Serious: Yes (Other)
  Sender: FDA-Public Use
  Company Number: US-JNJFOC-20100403926

PATIENT
  Age: 24 Year
  Sex: Female
  Weight: 83.01 kg

DRUGS (6)
  1. REMICADE [Suspect]
     Indication: COLITIS ULCERATIVE
     Route: 042
  2. PREDNISONE [Concomitant]
     Indication: COLITIS ULCERATIVE
  3. LIALDA [Concomitant]
     Indication: COLITIS ULCERATIVE
  4. PREVACID [Concomitant]
  5. CELEXA [Concomitant]
  6. AMBIEN [Concomitant]

REACTIONS (1)
  - LIGAMENT RUPTURE [None]
